FAERS Safety Report 19683963 (Version 2)
Quarter: 2021Q4

REPORT INFORMATION
  Report Type: Report from Study
  Country: US (occurrence: US)
  Receive Date: 20210811
  Receipt Date: 20211224
  Transmission Date: 20220303
  Serious: Yes (Other)
  Sender: FDA-Public Use
  Company Number: US-SA-SAC20210809000061

PATIENT
  Age: 35 Year
  Sex: Male

DRUGS (1)
  1. TERIFLUNOMIDE [Suspect]
     Active Substance: TERIFLUNOMIDE
     Indication: Multiple sclerosis
     Dosage: 14 MG, QD
     Route: 048
     Dates: start: 20210709

REACTIONS (16)
  - Optic neuritis [Unknown]
  - Diarrhoea haemorrhagic [Unknown]
  - Defaecation urgency [Unknown]
  - Visual impairment [Unknown]
  - Asthenia [Unknown]
  - Dizziness [Unknown]
  - Obesity [Unknown]
  - Photophobia [Unknown]
  - Muscle tightness [Unknown]
  - Spinal pain [Unknown]
  - Sleep apnoea syndrome [Unknown]
  - White blood cell count increased [Unknown]
  - Fatigue [Unknown]
  - Trigeminal nerve disorder [Unknown]
  - Hypertension [Unknown]
  - Headache [Unknown]

NARRATIVE: CASE EVENT DATE: 20210101
